FAERS Safety Report 15361744 (Version 2)
Quarter: 2018Q3

REPORT INFORMATION
  Report Type: Report from Study
  Country: US (occurrence: US)
  Receive Date: 20180907
  Receipt Date: 20180927
  Transmission Date: 20181010
  Serious: Yes (Other)
  Sender: FDA-Public Use
  Company Number: US-PFIZER INC-2018313885

PATIENT
  Age: 55 Year
  Sex: Female

DRUGS (3)
  1. IBRANCE [Suspect]
     Active Substance: PALBOCICLIB
     Indication: BREAST CANCER FEMALE
     Dosage: 125 MG, DAILY
     Route: 048
     Dates: start: 20180722, end: 20180805
  2. IBRANCE [Suspect]
     Active Substance: PALBOCICLIB
     Dosage: 125 MG, CYCLIC (DAILY ON DAYS 1?21 AND 1 WEEK OFF)
     Route: 048
     Dates: start: 20180813
  3. IBRANCE [Suspect]
     Active Substance: PALBOCICLIB
     Dosage: 125 MG, DAILY
     Route: 048

REACTIONS (7)
  - Oropharyngeal pain [Unknown]
  - Epistaxis [Not Recovered/Not Resolved]
  - Cardiac failure congestive [Unknown]
  - Eye swelling [Recovered/Resolved]
  - Haematochezia [Unknown]
  - Hypertension [Unknown]
  - Cough [Unknown]

NARRATIVE: CASE EVENT DATE: 2018
